FAERS Safety Report 12196985 (Version 2)
Quarter: 2016Q2

REPORT INFORMATION
  Report Type: Report from Study
  Country: US (occurrence: US)
  Receive Date: 20160321
  Receipt Date: 20160415
  Transmission Date: 20160815
  Serious: Yes (Death, Other)
  Sender: FDA-Public Use
  Company Number: US-BIOGEN-2009BI041111

PATIENT
  Age: 59 Year
  Sex: Female

DRUGS (1)
  1. TYSABRI [Suspect]
     Active Substance: NATALIZUMAB
     Indication: MULTIPLE SCLEROSIS
     Route: 042
     Dates: start: 20071023, end: 20100202

REACTIONS (9)
  - Infection [Recovered/Resolved]
  - Death [Fatal]
  - Aortic disorder [Recovered/Resolved]
  - Cholecystectomy [Recovered/Resolved]
  - Arterial disorder [Recovered/Resolved]
  - Apparent death [Unknown]
  - Weight decreased [Unknown]
  - Visual impairment [Unknown]
  - Hernia [Recovered/Resolved]

NARRATIVE: CASE EVENT DATE: 2009
